FAERS Safety Report 6744631-2 (Version None)
Quarter: 2010Q2

REPORT INFORMATION
  Report Type: 
  Country: None (occurrence: None)
  Receive Date: 20100527
  Receipt Date: 20100523
  Transmission Date: 20101027
  Serious: Yes (Hospitalization)
  Sender: FDA-Public Use
  Company Number: Z0004316B

PATIENT
  Age: 79 Year
  Sex: Female

DRUGS (1)
  1. OFATUMUMAB [Suspect]
     Route: 042
     Dates: start: 20100423

REACTIONS (3)
  - FLUID OVERLOAD [None]
  - HAEMOLYSIS [None]
  - PULMONARY OEDEMA [None]
